FAERS Safety Report 19991491 (Version 4)
Quarter: 2022Q3

REPORT INFORMATION
  Report Type: Spontaneous
  Country: US (occurrence: US)
  Receive Date: 20211025
  Receipt Date: 20220829
  Transmission Date: 20221027
  Serious: Yes (Other)
  Sender: FDA-Public Use
  Company Number: US-PFIZER INC-2021466720

PATIENT
  Age: 41 Year
  Sex: Female

DRUGS (1)
  1. XELJANZ XR [Suspect]
     Active Substance: TOFACITINIB CITRATE
     Dosage: 11 MG

REACTIONS (6)
  - Drug dependence [Unknown]
  - Malaise [Unknown]
  - Visual impairment [Unknown]
  - Oropharyngeal pain [Unknown]
  - Confusional state [Unknown]
  - Pain [Unknown]

NARRATIVE: CASE EVENT DATE: 20210422
